FAERS Safety Report 5691042-7 (Version None)
Quarter: 2008Q2

REPORT INFORMATION
  Report Type: 
  Country: None (occurrence: None)
  Receive Date: 20080401
  Receipt Date: 20070727
  Transmission Date: 20081010
  Serious: No
  Sender: FDA-Public Use
  Company Number: US-BAYER-US-2007-028061

PATIENT

DRUGS (1)
  1. REFLUDAN [Suspect]
     Dates: end: 20070723

REACTIONS (3)
  - ACTIVATED PARTIAL THROMBOPLASTIN TIME PROLONGED [None]
  - BLOOD CREATININE ABNORMAL [None]
  - EPISTAXIS [None]
